FAERS Safety Report 24709229 (Version 1)
Quarter: 2024Q4

REPORT INFORMATION
  Report Type: Spontaneous
  Country: US (occurrence: US)
  Receive Date: 20241208
  Receipt Date: 20241208
  Transmission Date: 20250115
  Serious: No
  Sender: BAUSCH AND LOMB
  Company Number: US-BAUSCHBL-2024BNL038467

PATIENT
  Age: 65 Year
  Sex: Female

DRUGS (2)
  1. XIIDRA [Suspect]
     Active Substance: LIFITEGRAST
     Indication: Dry eye
     Route: 047
  2. MIEBO [Concomitant]
     Active Substance: PERFLUOROHEXYLOCTANE
     Indication: Product used for unknown indication
     Route: 047

REACTIONS (5)
  - Product packaging quantity issue [Unknown]
  - Product delivery mechanism issue [Unknown]
  - Product container issue [Unknown]
  - Product complaint [Unknown]
  - Circumstance or information capable of leading to medication error [Unknown]
